FAERS Safety Report 6184497-5 (Version None)
Quarter: 2009Q2

REPORT INFORMATION
  Report Type: 
  Country: None (occurrence: None)
  Receive Date: 20090508
  Receipt Date: 20090428
  Transmission Date: 20091009
  Serious: Yes (Hospitalization)
  Sender: FDA-Public Use
  Company Number: FR-NOVOPROD-286753

PATIENT
  Age: 84 Year
  Sex: Male

DRUGS (11)
  1. ACTRAPID [Suspect]
     Indication: TYPE 1 DIABETES MELLITUS
     Dosage: 20 IU, QD
     Route: 058
     Dates: end: 20080101
  2. LASILIX                            /00032601/ [Concomitant]
  3. KARDEGIC                           /00002703/ [Concomitant]
  4. ALDACTONE [Concomitant]
  5. AMIODARONE [Concomitant]
  6. MOPRAL                             /00661201/ [Concomitant]
  7. PERMIXON                           /00833501/ [Concomitant]
  8. TEGRETOL [Concomitant]
  9. MOVICOL                            /01053601/ [Concomitant]
  10. FORTIMEL [Concomitant]
  11. LANTUS [Concomitant]

REACTIONS (2)
  - HYPOGLYCAEMIA [None]
  - MALAISE [None]
